FAERS Safety Report 17684677 (Version 1)
Quarter: 2020Q2

REPORT INFORMATION
  Report Type: Spontaneous
  Country: US (occurrence: US)
  Receive Date: 20200419
  Receipt Date: 20200419
  Transmission Date: 20200714
  Serious: Yes (Other)
  Sender: FDA-Public Use
  Company Number: None

PATIENT
  Age: 9 Year
  Sex: Male
  Weight: 31.5 kg

DRUGS (3)
  1. MONTELUKAST (GENERIC FOR SINGULAIR) [Suspect]
     Active Substance: MONTELUKAST SODIUM
     Indication: HYPERSENSITIVITY
     Dosage: ?          QUANTITY:1 TABLET(S);?
     Route: 048
  2. MELATONIN [Concomitant]
     Active Substance: MELATONIN
  3. MONTELUKAST (GENERIC FOR SINGULAIR) [Suspect]
     Active Substance: MONTELUKAST SODIUM
     Indication: ASTHMA
     Dosage: ?          QUANTITY:1 TABLET(S);?
     Route: 048

REACTIONS (12)
  - Headache [None]
  - Withdrawal syndrome [None]
  - Intrusive thoughts [None]
  - Crying [None]
  - Arthralgia [None]
  - Anxiety [None]
  - Depression [None]
  - Fear [None]
  - Depressed mood [None]
  - Loss of personal independence in daily activities [None]
  - Vomiting [None]
  - Impaired quality of life [None]

NARRATIVE: CASE EVENT DATE: 20180811
